FAERS Safety Report 4876563-9 (Version None)
Quarter: 2005Q4

REPORT INFORMATION
  Report Type: 
  Country: None (occurrence: None)
  Receive Date: 20051206
  Receipt Date: 20050916
  Transmission Date: 20060501
  Serious: Yes (Hospitalization, Other)
  Sender: FDA-Public Use
  Company Number: USA0509107431

PATIENT
  Age: 41 Year
  Sex: Male

DRUGS (3)
  1. CYMBALTA [Suspect]
     Indication: DEPRESSION
     Dosage: 60 MG
     Dates: start: 20050804, end: 20050905
  2. AMBIEN [Concomitant]
  3. LEXAPRO [Concomitant]

REACTIONS (4)
  - AGITATION [None]
  - BIPOLAR DISORDER [None]
  - DRUG INEFFECTIVE [None]
  - SUICIDE ATTEMPT [None]
